FAERS Safety Report 5890185-2 (Version None)
Quarter: 2008Q3

REPORT INFORMATION
  Report Type: 
  Country: None (occurrence: None)
  Receive Date: 20080919
  Receipt Date: 20080908
  Transmission Date: 20090109
  Serious: Yes (Hospitalization)
  Sender: FDA-Public Use
  Company Number: NL-PFIZER INC-2008075914

PATIENT
  Sex: Male
  Weight: 16 kg

DRUGS (7)
  1. DIFLUCAN [Suspect]
     Indication: ACUTE LYMPHOCYTIC LEUKAEMIA
     Dates: start: 20070501, end: 20080701
  2. CIPROFLOXACIN HCL [Suspect]
     Indication: ACUTE LYMPHOCYTIC LEUKAEMIA
     Dates: start: 20070501, end: 20080701
  3. COTRIM [Concomitant]
  4. DEXAMETHASONE [Concomitant]
  5. VINCRISTINE SULFATE [Concomitant]
  6. EMTHEXATE [Concomitant]
  7. PURINETHOL [Concomitant]

REACTIONS (2)
  - ANAEMIA [None]
  - THROMBOCYTOPENIA [None]
